FAERS Safety Report 21366193 (Version 1)
Quarter: 2022Q3

REPORT INFORMATION
  Report Type: Spontaneous
  Country: PL (occurrence: PL)
  Receive Date: 20220922
  Receipt Date: 20220922
  Transmission Date: 20221027
  Serious: Yes (Death, Life-Threatening, Hospitalization, Other)
  Sender: FDA-Public Use
  Company Number: None

PATIENT
  Age: 92 Year
  Sex: Female
  Weight: 70 kg

DRUGS (1)
  1. ELIQUIS [Suspect]
     Active Substance: APIXABAN
     Indication: Cerebrovascular accident prophylaxis
     Dosage: 2,5MG, INTERVAL 12 HOURS
     Route: 048
     Dates: end: 20220908

REACTIONS (6)
  - Chronic gastrointestinal bleeding [Fatal]
  - Cerebrovascular accident [Fatal]
  - Status epilepticus [Fatal]
  - Pneumonia aspiration [Fatal]
  - Upper gastrointestinal haemorrhage [Fatal]
  - Anaemia [Fatal]

NARRATIVE: CASE EVENT DATE: 20220909
